FAERS Safety Report 10233241 (Version 2)
Quarter: 2014Q3

REPORT INFORMATION
  Report Type: Spontaneous
  Country: DE (occurrence: DE)
  Receive Date: 20140612
  Receipt Date: 20140702
  Transmission Date: 20150326
  Serious: Yes (Hospitalization, Other)
  Sender: FDA-Public Use
  Company Number: DE-ACTAVIS-2014-11903

PATIENT
  Age: 25 Year
  Sex: Male
  Weight: 73 kg

DRUGS (4)
  1. METHADONE [Suspect]
     Active Substance: METHADONE HYDROCHLORIDE
     Indication: VOMITING
  2. MORPHINE SULFATE (UNKNOWN) [Suspect]
     Active Substance: MORPHINE SULFATE
     Indication: DRUG DEPENDENCE
     Dosage: UNKNOWN - INJECTIONS
     Route: 051
  3. METHADONE [Suspect]
     Active Substance: METHADONE HYDROCHLORIDE
     Indication: DRUG DEPENDENCE
     Dosage: 20 MG, DAILY
     Route: 065
  4. MORPHINE SULFATE (UNKNOWN) [Suspect]
     Active Substance: MORPHINE SULFATE
     Indication: VOMITING

REACTIONS (10)
  - Pain in extremity [Unknown]
  - Sleep disorder [Unknown]
  - Anxiety [Unknown]
  - Drug withdrawal syndrome [Unknown]
  - Depression [Unknown]
  - Abdominal pain [Unknown]
  - Drug dependence [Unknown]
  - Influenza like illness [Unknown]
  - Restless legs syndrome [Unknown]
  - Myalgia [Unknown]
